FAERS Safety Report 20987968 (Version 1)
Quarter: 2022Q2

REPORT INFORMATION
  Report Type: Spontaneous
  Country: US (occurrence: None)
  Receive Date: 20220620
  Receipt Date: 20220620
  Transmission Date: 20220721
  Serious: Yes (Other)
  Sender: FDA-Public Use
  Company Number: None

PATIENT
  Age: 35 Year
  Sex: Female
  Weight: 67.5 kg

DRUGS (5)
  1. DOXYCYCLINE HYCLATE [Suspect]
     Active Substance: DOXYCYCLINE HYCLATE
     Indication: Acne
     Route: 048
     Dates: start: 20220520, end: 20220528
  2. ADDERALL XR [Concomitant]
     Active Substance: AMPHETAMINE ASPARTATE\AMPHETAMINE SULFATE\DEXTROAMPHETAMINE SACCHARATE\DEXTROAMPHETAMINE SULFATE
  3. ZOLOFT [Concomitant]
     Active Substance: SERTRALINE HYDROCHLORIDE
  4. Fish oil pills [Concomitant]
  5. VITAMINS [Concomitant]
     Active Substance: VITAMINS

REACTIONS (4)
  - Depression [None]
  - Suicidal ideation [None]
  - Abnormal behaviour [None]
  - Homicidal ideation [None]

NARRATIVE: CASE EVENT DATE: 20220520
